FAERS Safety Report 15570990 (Version 3)
Quarter: 2018Q4

REPORT INFORMATION
  Report Type: Spontaneous
  Country: JP (occurrence: JP)
  Receive Date: 20181031
  Receipt Date: 20181108
  Transmission Date: 20190205
  Serious: Yes (Other)
  Sender: FDA-Public Use
  Company Number: JP-SAKK-2018SA294000AA

PATIENT
  Age: 38 Year
  Sex: Male

DRUGS (4)
  1. PACLITAXEL. [Suspect]
     Active Substance: PACLITAXEL
     Indication: MEDIASTINAL MASS
     Dosage: QW
     Route: 065
  2. DOCETAXEL. [Suspect]
     Active Substance: DOCETAXEL
     Indication: APOCRINE BREAST CARCINOMA
     Dosage: UNK
     Route: 041
  3. TRASTUZUMAB RECOMBINANT [Suspect]
     Active Substance: TRASTUZUMAB
     Indication: APOCRINE BREAST CARCINOMA
     Route: 065
  4. PERTUZUMAB RECOMBINANT [Suspect]
     Active Substance: PERTUZUMAB
     Indication: APOCRINE BREAST CARCINOMA
     Route: 065

REACTIONS (2)
  - Febrile neutropenia [Unknown]
  - Paronychia [Unknown]
